FAERS Safety Report 4784310-4 (Version None)
Quarter: 2005Q3

REPORT INFORMATION
  Report Type: 
  Country: None (occurrence: None)
  Receive Date: 20050930
  Receipt Date: 20050706
  Transmission Date: 20060218
  Serious: Yes (Life-Threatening, Other)
  Sender: FDA-Public Use
  Company Number: 200512275FR

PATIENT
  Age: 34 Year
  Sex: Male

DRUGS (7)
  1. LANTUS [Suspect]
     Indication: DIABETES MELLITUS
     Route: 058
     Dates: start: 20050305, end: 20050428
  2. NOVORAPID [Suspect]
     Indication: DIABETES MELLITUS
     Route: 058
     Dates: start: 20050305
  3. TERCIAN [Concomitant]
     Indication: PSYCHOTIC DISORDER
     Route: 048
  4. MODECATE [Concomitant]
     Indication: PSYCHOTIC DISORDER
     Route: 030
  5. XANAX [Concomitant]
     Route: 048
  6. CITALOPRAM HYDROBROMIDE [Concomitant]
     Route: 048
  7. ROHYPNOL [Concomitant]
     Route: 048

REACTIONS (8)
  - ANOXIA [None]
  - APHASIA [None]
  - ASPIRATION TRACHEAL [None]
  - COMA [None]
  - CONVULSION [None]
  - DIFFICULTY IN WALKING [None]
  - HYPOGLYCAEMIA [None]
  - NUCLEAR MAGNETIC RESONANCE IMAGING BRAIN ABNORMAL [None]
